FAERS Safety Report 19442886 (Version 1)
Quarter: 2021Q2

REPORT INFORMATION
  Report Type: Report from Study
  Country: None (occurrence: AU)
  Receive Date: 20210621
  Receipt Date: 20210621
  Transmission Date: 20210717
  Serious: Yes (Death)
  Sender: FDA-Public Use
  Company Number: AU-ABBVIE-21P-008-3956984-00

PATIENT
  Age: 68 Year
  Sex: Female
  Weight: 50.9 kg

DRUGS (11)
  1. MOXIFLOXACIN. [Concomitant]
     Active Substance: MOXIFLOXACIN
     Indication: FEBRILE NEUTROPENIA
     Dates: start: 20210319, end: 20210331
  2. VALACYCLOVIR [Concomitant]
     Active Substance: VALACYCLOVIR HYDROCHLORIDE
     Indication: ANTIVIRAL PROPHYLAXIS
     Dates: start: 20201209
  3. PARACETAMOL [Concomitant]
     Active Substance: ACETAMINOPHEN
     Indication: FEBRILE NEUTROPENIA
     Dates: start: 20210215, end: 20210331
  4. LOW DOSE CYTARABINE [Concomitant]
     Indication: ACUTE MYELOID LEUKAEMIA
  5. MIRTAZAPINE. [Concomitant]
     Active Substance: MIRTAZAPINE
     Indication: DEPRESSION
     Dates: start: 20210311, end: 20210331
  6. MINOCYCLINE [Concomitant]
     Active Substance: MINOCYCLINE HYDROCHLORIDE
     Indication: FEBRILE NEUTROPENIA
     Dates: start: 20210311
  7. METOCLOPRAMIDE. [Concomitant]
     Active Substance: METOCLOPRAMIDE
     Indication: NAUSEA
     Dates: start: 20201231
  8. COLOXYL WITH SENNA [Concomitant]
     Active Substance: DOCUSATE SODIUM\SENNOSIDES A AND B
     Indication: CONSTIPATION
     Dates: start: 20210216
  9. PRACINOSTAT [Concomitant]
     Active Substance: PRACINOSTAT
     Indication: ACUTE MYELOID LEUKAEMIA
     Dates: start: 20210108, end: 20210213
  10. VENETOCLAX. [Suspect]
     Active Substance: VENETOCLAX
     Indication: ACUTE MYELOID LEUKAEMIA
     Route: 048
     Dates: start: 20201230, end: 20210214
  11. PANTOPRAZOLE [Concomitant]
     Active Substance: PANTOPRAZOLE
     Indication: GASTRITIS
     Dates: start: 20210120

REACTIONS (1)
  - Bone marrow failure [Fatal]

NARRATIVE: CASE EVENT DATE: 20210309
